FAERS Safety Report 9905314 (Version 4)
Quarter: 2014Q1

REPORT INFORMATION
  Report Type: Spontaneous
  Country: JP (occurrence: None)
  Receive Date: 20140211
  Receipt Date: 20140318
  Transmission Date: 20141002
  Serious: Yes (Life-Threatening)
  Sender: FDA-Public Use
  Company Number: 2014JP010294

PATIENT
  Age: 50 Year
  Sex: Female
  Weight: 50 kg

DRUGS (4)
  1. ALOXI [Suspect]
     Indication: PROPHYLAXIS OF NAUSEA AND VOMITING
     Route: 041
     Dates: start: 20140107, end: 20140107
  2. DEXART [Suspect]
     Indication: ALLERGY PROPHYLAXIS
     Route: 041
     Dates: start: 20140114, end: 20140114
  3. CARBOPLATIN (CARBOPLATIN) [Concomitant]
  4. TAXOL (PACLITAXEL) [Concomitant]

REACTIONS (5)
  - Blood pressure decreased [None]
  - Dyspnoea [None]
  - Malaise [None]
  - Nausea [None]
  - Anaphylactic shock [None]
